FAERS Safety Report 5024476-4 (Version None)
Quarter: 2006Q2

REPORT INFORMATION
  Report Type: 
  Country: None (occurrence: None)
  Receive Date: 20060613
  Receipt Date: 20060113
  Transmission Date: 20061013
  Serious: Yes (Hospitalization, Other)
  Sender: FDA-Public Use
  Company Number: PHBS2006JP00988

PATIENT
  Age: 66 Year
  Sex: Male

DRUGS (3)
  1. DIOVAN [Suspect]
     Indication: HYPERTENSION
     Dosage: 80 MG/DAY
     Route: 048
     Dates: end: 20060113
  2. LANDEL [Concomitant]
     Dosage: 10 MG/DAY
     Route: 048
     Dates: end: 20060113
  3. OMEPRAZOLE [Concomitant]
     Dosage: 40 MG/DAY
     Dates: start: 20060113, end: 20060120

REACTIONS (4)
  - BLOOD CALCIUM INCREASED [None]
  - HYPERCALCAEMIA [None]
  - PARATHYROID TUMOUR BENIGN [None]
  - ULCER HAEMORRHAGE [None]
